FAERS Safety Report 9541908 (Version 1)
Quarter: 2013Q3

REPORT INFORMATION
  Report Type: Spontaneous
  Country: US (occurrence: US)
  Receive Date: 20130923
  Receipt Date: 20130923
  Transmission Date: 20140515
  Serious: Yes (Other)
  Sender: FDA-Public Use
  Company Number: US-SANOFI-AVENTIS-2013SA092136

PATIENT
  Age: 82 Year
  Sex: Female

DRUGS (1)
  1. LANTUS [Suspect]
     Dosage: DOSE:55 UNIT(S)
     Route: 051
     Dates: start: 2000

REACTIONS (3)
  - Infection [Recovered/Resolved]
  - Arthropathy [Unknown]
  - Drug dose omission [Unknown]
